FAERS Safety Report 14894595 (Version 7)
Quarter: 2018Q3

REPORT INFORMATION
  Report Type: Report from Study
  Country: US (occurrence: US)
  Receive Date: 20180515
  Receipt Date: 20180928
  Transmission Date: 20181010
  Serious: Yes (Hospitalization)
  Sender: FDA-Public Use
  Company Number: US-ROCHE-2120714

PATIENT
  Age: 57 Year
  Sex: Female
  Weight: 75.34 kg

DRUGS (14)
  1. COBIMETINIB. [Suspect]
     Active Substance: COBIMETINIB
     Indication: MALIGNANT MELANOMA
     Dosage: 60 MG ORALLY ONCE DAILY (QD) ON DAYS 1?21 OF EACH 28?DAY CYCLE?MOST RECENT DOSE OF COMBIMETINIB PRIO
     Route: 048
     Dates: start: 20180328
  2. ELIQUIS [Concomitant]
     Active Substance: APIXABAN
     Indication: EMBOLISM VENOUS
     Route: 048
     Dates: start: 20180306
  3. AMBIEN [Concomitant]
     Active Substance: ZOLPIDEM TARTRATE
     Indication: INSOMNIA
     Route: 065
     Dates: start: 20180424
  4. IMODIUM [Concomitant]
     Active Substance: LOPERAMIDE HYDROCHLORIDE
     Indication: DIARRHOEA
     Route: 065
     Dates: start: 20180410
  5. CIPRO [Concomitant]
     Active Substance: CIPROFLOXACIN HYDROCHLORIDE
     Route: 065
     Dates: start: 20180508
  6. ATARAX [Concomitant]
     Active Substance: HYDROXYZINE HYDROCHLORIDE
     Indication: DRY SKIN
     Route: 065
     Dates: start: 20180424
  7. TYLENOL [Concomitant]
     Active Substance: ACETAMINOPHEN
     Indication: PYREXIA
     Route: 065
     Dates: start: 20180425
  8. CALCIUM GLUCONATE. [Concomitant]
     Active Substance: CALCIUM GLUCONATE
     Indication: MINERAL SUPPLEMENTATION
     Route: 065
     Dates: start: 20180505, end: 20180505
  9. ATEZOLIZUMAB. [Suspect]
     Active Substance: ATEZOLIZUMAB
     Indication: MALIGNANT MELANOMA
     Dosage: DATE OF LAST DOSE PRIOR TO SAE 24/APR/2018 (17.22)?840 MG INTRAVENOUSLY EVERY TWO WEEKS (Q2W) ON DAY
     Route: 042
     Dates: start: 20180410
  10. LISINOPRIL. [Concomitant]
     Active Substance: LISINOPRIL
     Indication: HYPERTENSION
     Route: 048
     Dates: start: 20180306
  11. ZYRTEC [Concomitant]
     Active Substance: CETIRIZINE HYDROCHLORIDE
     Indication: DRY SKIN
     Route: 065
     Dates: start: 20180424
  12. ACETAMINOPHEN/OXYCODONE [Concomitant]
     Active Substance: ACETAMINOPHEN\OXYCODONE HYDROCHLORIDE
     Dosage: 5/325 MG
     Route: 048
     Dates: start: 20180620, end: 20180620
  13. TYLENOL [Concomitant]
     Active Substance: ACETAMINOPHEN
     Indication: CHILLS
  14. ZOSYN [Concomitant]
     Active Substance: PIPERACILLIN SODIUM\TAZOBACTAM SODIUM
     Route: 065
     Dates: start: 20180508

REACTIONS (4)
  - Hypothyroidism [Not Recovered/Not Resolved]
  - Adrenal insufficiency [Recovered/Resolved]
  - Acute kidney injury [Recovered/Resolved]
  - Dyspnoea [Recovering/Resolving]

NARRATIVE: CASE EVENT DATE: 20180424
